FAERS Safety Report 7499112-8 (Version None)
Quarter: 2011Q2

REPORT INFORMATION
  Report Type: 
  Country: None (occurrence: None)
  Receive Date: 20110524
  Receipt Date: 20110217
  Transmission Date: 20111010
  Serious: No
  Sender: FDA-Public Use
  Company Number: US-NOVEN-11US001818

PATIENT
  Sex: Female
  Weight: 63.492 kg

DRUGS (4)
  1. DAYTRANA [Suspect]
     Indication: ATTENTION DEFICIT/HYPERACTIVITY DISORDER
     Dosage: 30 MG, QD
     Route: 062
     Dates: start: 20101001
  2. DAYTRANA [Suspect]
     Dosage: 2 20 MG PATCHES QD
     Route: 062
     Dates: end: 20101001
  3. UNKNOWN [Concomitant]
  4. DAYTRANA [Suspect]
     Dosage: HALF OF 20 MG PATCH QD
     Route: 062
     Dates: start: 20101001

REACTIONS (4)
  - WRONG TECHNIQUE IN DRUG USAGE PROCESS [None]
  - DRUG PRESCRIBING ERROR [None]
  - OVERDOSE [None]
  - NO ADVERSE EVENT [None]
